FAERS Safety Report 13854615 (Version 1)
Quarter: 2017Q3

REPORT INFORMATION
  Report Type: Report from Study
  Country: US (occurrence: US)
  Receive Date: 20170809
  Receipt Date: 20170809
  Transmission Date: 20171127
  Serious: Yes (Hospitalization)
  Sender: FDA-Public Use
  Company Number: US-VIFOR (INTERNATIONAL) INC.-VIT-2017-08388

PATIENT
  Age: 85 Year
  Sex: Male

DRUGS (10)
  1. TAMSULOSIN HYDROCHLORIDE/DUTASTERIDE [Concomitant]
  2. TORASEMIDE [Concomitant]
     Active Substance: TORSEMIDE
  3. ASA [Concomitant]
     Active Substance: ASPIRIN
  4. ALLOPURINOL. [Concomitant]
     Active Substance: ALLOPURINOL
  5. TAMSULOSIN [Concomitant]
     Active Substance: TAMSULOSIN
  6. VELTASSA [Suspect]
     Active Substance: PATIROMER
     Indication: HYPERKALAEMIA
     Route: 048
     Dates: start: 20170411, end: 201707
  7. AMLODIPINE [Concomitant]
     Active Substance: AMLODIPINE BESYLATE
  8. CLINDAMYCIN. [Concomitant]
     Active Substance: CLINDAMYCIN
  9. RANITIDINE. [Concomitant]
     Active Substance: RANITIDINE
  10. IPRATROPIUM [Concomitant]
     Active Substance: IPRATROPIUM

REACTIONS (1)
  - Renal failure [Not Recovered/Not Resolved]

NARRATIVE: CASE EVENT DATE: 20170724
